FAERS Safety Report 10187395 (Version 3)
Quarter: 2014Q3

REPORT INFORMATION
  Report Type: Spontaneous
  Country: IT (occurrence: None)
  Receive Date: 20140520
  Receipt Date: 20140807
  Transmission Date: 20150326
  Serious: Yes (Hospitalization)
  Sender: FDA-Public Use
  Company Number: AUR-APL-2014-05884

PATIENT
  Age: 50 Year
  Sex: Male

DRUGS (3)
  1. LEVOFLOXACINA [Suspect]
     Active Substance: LEVOFLOXACIN
     Indication: PRODUCT USED FOR UNKNOWN INDICATION
     Dosage: TOTAL
     Route: 048
     Dates: start: 20140407, end: 20140407
  2. TOTALIP (ATORVASTATIN CALCIUM) [Concomitant]
  3. NORVASC [Concomitant]
     Active Substance: AMLODIPINE BESYLATE

REACTIONS (4)
  - Urticaria [None]
  - Rash erythematous [None]
  - Dysphonia [None]
  - Rash pruritic [None]

NARRATIVE: CASE EVENT DATE: 20140407
